FAERS Safety Report 5768549-7 (Version None)
Quarter: 2008Q2

REPORT INFORMATION
  Report Type: 
  Country: None (occurrence: None)
  Receive Date: 20080612
  Receipt Date: 20080604
  Transmission Date: 20081010
  Serious: Yes (Other)
  Sender: FDA-Public Use
  Company Number: US-ABBOTT-08P-163-0455655-00

PATIENT
  Sex: Female

DRUGS (1)
  1. SYNTHROID [Suspect]
     Indication: DRUG USE FOR UNKNOWN INDICATION
     Dates: start: 19930101

REACTIONS (4)
  - DRUG LEVEL FLUCTUATING [None]
  - FATIGUE [None]
  - THYROIDECTOMY [None]
  - WEIGHT INCREASED [None]
